FAERS Safety Report 8465645-0 (Version None)
Quarter: 2012Q2

REPORT INFORMATION
  Report Type: 
  Country: None (occurrence: None)
  Receive Date: 20120621
  Receipt Date: 20120621
  Transmission Date: 20120825
  Serious: Yes (Hospitalization)
  Sender: FDA-Public Use
  Company Number: None

PATIENT
  Sex: Male
  Weight: 78.8 kg

DRUGS (1)
  1. CISPLATIN [Suspect]
     Dosage: 76 MG  PT RECEIVED A TOTAL OF 546 MG OF CISPLATIN IN 7 DOSES
     Dates: end: 20120526

REACTIONS (7)
  - PNEUMONIA [None]
  - ESCHERICHIA INFECTION [None]
  - STENOTROPHOMONAS INFECTION [None]
  - MENTAL STATUS CHANGES [None]
  - CONVULSION [None]
  - URINARY TRACT INFECTION [None]
  - PSEUDOMONAS INFECTION [None]
